FAERS Safety Report 24373177 (Version 1)
Quarter: 2024Q3

REPORT INFORMATION
  Report Type: Spontaneous
  Country: VN (occurrence: VN)
  Receive Date: 20240927
  Receipt Date: 20240927
  Transmission Date: 20241017
  Serious: Yes (Death)
  Sender: JOHNSON AND JOHNSON
  Company Number: VN-JNJFOC-20240971510

PATIENT
  Age: 71 Year
  Sex: Female

DRUGS (1)
  1. DARZALEX [Suspect]
     Active Substance: DARATUMUMAB
     Indication: Product used for unknown indication
     Dosage: 20MG/ML
     Route: 065
     Dates: start: 20190723, end: 20240331

REACTIONS (2)
  - Plasma cell myeloma [Fatal]
  - Neuropathy peripheral [Fatal]
